FAERS Safety Report 8506953-4 (Version None)
Quarter: 2012Q3

REPORT INFORMATION
  Report Type: 
  Country: None (occurrence: None)
  Receive Date: 20120712
  Receipt Date: 20120706
  Transmission Date: 20120928
  Serious: Yes (Death)
  Sender: FDA-Public Use
  Company Number: JP-ELI_LILLY_AND_COMPANY-JP201207002063

PATIENT
  Age: 79 Year
  Sex: Female

DRUGS (1)
  1. ALIMTA [Suspect]
     Indication: BRONCHIOLOALVEOLAR CARCINOMA
     Dosage: 500 MG/M2, UNK
     Route: 042
     Dates: start: 20100917

REACTIONS (2)
  - INTERSTITIAL LUNG DISEASE [None]
  - RASH [None]
